FAERS Safety Report 8956762 (Version 2)
Quarter: 2013Q1

REPORT INFORMATION
  Report Type: Spontaneous
  Country: US (occurrence: US)
  Receive Date: 20121211
  Receipt Date: 20130104
  Transmission Date: 20140127
  Serious: Yes (Life-Threatening, Hospitalization)
  Sender: FDA-Public Use
  Company Number: US-009507513-1212USA002930

PATIENT
  Age: 51 Year
  Sex: Female

DRUGS (8)
  1. INVANZ [Suspect]
     Indication: LOCALISED INFECTION
     Dosage: 500 MG, DAILY
     Route: 042
     Dates: start: 20121121
  2. INVANZ [Suspect]
     Indication: SKIN ULCER
  3. SIMVASTATIN [Concomitant]
     Dosage: UNK UNK, QD
  4. LISINOPRIL [Concomitant]
  5. NOVOLOG [Concomitant]
  6. FUROSEMIDE [Concomitant]
  7. METOCLOPRAMIDE [Concomitant]
  8. VANCOMYCIN [Concomitant]
     Indication: SKIN ULCER

REACTIONS (2)
  - Hypoxic-ischaemic encephalopathy [Unknown]
  - Endotracheal intubation [Unknown]
